FAERS Safety Report 8413427-8 (Version None)
Quarter: 2012Q2

REPORT INFORMATION
  Report Type: 
  Country: None (occurrence: None)
  Receive Date: 20120605
  Receipt Date: 20120530
  Transmission Date: 20120825
  Serious: No
  Sender: FDA-Public Use
  Company Number: US-PFIZER INC-2012130790

PATIENT
  Sex: Female
  Weight: 54.422 kg

DRUGS (1)
  1. SILVADENE [Suspect]
     Indication: THERMAL BURN
     Dosage: UNK

REACTIONS (1)
  - SKIN DISCOLOURATION [None]
